FAERS Safety Report 5153643-4 (Version None)
Quarter: 2006Q4

REPORT INFORMATION
  Report Type: 
  Country: None (occurrence: None)
  Receive Date: 20061114
  Receipt Date: 20061030
  Transmission Date: 20070319
  Serious: Yes (Hospitalization)
  Sender: FDA-Public Use
  Company Number: 2006100784

PATIENT
  Age: 84 Year
  Sex: Female

DRUGS (8)
  1. ATENOLOL [Suspect]
     Indication: HYPERTENSION
     Dosage: 25 MG (1 IN 1 D), ORAL
     Route: 048
  2. ALDACTAZINE (SPIRONOLACTONE, ALTIZIDE) [Suspect]
     Dosage: 0.25 DOSE FORM (1 IN 1 D), ORAL
     Route: 048
  3. DIGOXIN [Concomitant]
  4. PREVISCAN (FLUINDIONE) [Concomitant]
  5. LORAZEPAM [Concomitant]
  6. DEPAKENE [Concomitant]
  7. HYDREA [Concomitant]
  8. SOLU-MEDROL [Concomitant]

REACTIONS (5)
  - FACIAL PALSY [None]
  - HEMIPARESIS [None]
  - HYPERGLYCAEMIA [None]
  - HYPOTENSION [None]
  - SOMNOLENCE [None]
